FAERS Safety Report 19807588 (Version 1)
Quarter: 2021Q3

REPORT INFORMATION
  Report Type: Spontaneous
  Country: US (occurrence: US)
  Receive Date: 20210908
  Receipt Date: 20210908
  Transmission Date: 20211014
  Serious: No
  Sender: FDA-Public Use
  Company Number: None

PATIENT
  Sex: Male

DRUGS (2)
  1. MOTRIN [Concomitant]
     Active Substance: IBUPROFEN
  2. KRATOM [Suspect]
     Active Substance: HERBALS\MITRAGYNINE
     Indication: DRUG DEPENDENCE

REACTIONS (3)
  - Theft [None]
  - Drug dependence [None]
  - Economic problem [None]
